FAERS Safety Report 17421985 (Version 4)
Quarter: 2020Q1

REPORT INFORMATION
  Report Type: Report from Study
  Country: AU (occurrence: AU)
  Receive Date: 20200214
  Receipt Date: 20200327
  Transmission Date: 20200409
  Serious: Yes (Hospitalization)
  Sender: FDA-Public Use
  Company Number: AU-BIOGEN-2019BI00811326

PATIENT
  Age: 67 Year
  Sex: Female

DRUGS (4)
  1. PLEGRIDY [Suspect]
     Active Substance: PEGINTERFERON BETA-1A
     Route: 058
     Dates: start: 20200129
  2. PLEGRIDY [Suspect]
     Active Substance: PEGINTERFERON BETA-1A
     Indication: MULTIPLE SCLEROSIS
     Route: 058
     Dates: start: 20191120
  3. PLEGRIDY [Suspect]
     Active Substance: PEGINTERFERON BETA-1A
     Route: 058
     Dates: start: 20200318
  4. PLEGRIDY [Suspect]
     Active Substance: PEGINTERFERON BETA-1A
     Dosage: 2ND DOSE
     Route: 058
     Dates: start: 20200317

REACTIONS (14)
  - Muscular weakness [Unknown]
  - Pain [Unknown]
  - Body temperature increased [Unknown]
  - Tremor [Unknown]
  - Tenderness [Unknown]
  - Sinusitis [Not Recovered/Not Resolved]
  - Urinary incontinence [Unknown]
  - Prescribed underdose [Not Recovered/Not Resolved]
  - Drug intolerance [Unknown]
  - Malaise [Not Recovered/Not Resolved]
  - Discomfort [Unknown]
  - Agitation [Unknown]
  - Fall [Recovered/Resolved]
  - Dysstasia [Unknown]

NARRATIVE: CASE EVENT DATE: 20191120
